FAERS Safety Report 8998020 (Version 1)
Quarter: 2013Q1

REPORT INFORMATION
  Report Type: Spontaneous
  Country: US (occurrence: US)
  Receive Date: 20130105
  Receipt Date: 20130105
  Transmission Date: 20140127
  Serious: No
  Sender: FDA-Public Use
  Company Number: US-009507513-1212USA010836

PATIENT
  Sex: Female

DRUGS (1)
  1. NUVARING [Suspect]
     Indication: CONTRACEPTION
     Dosage: 0.012/0.015
     Route: 067
     Dates: start: 20121224

REACTIONS (2)
  - Irritability [Unknown]
  - Abdominal distension [Unknown]
